FAERS Safety Report 4738220-9 (Version None)
Quarter: 2005Q3

REPORT INFORMATION
  Report Type: 
  Country: None (occurrence: None)
  Receive Date: 20050729
  Receipt Date: 20050715
  Transmission Date: 20060218
  Serious: No
  Sender: FDA-Public Use
  Company Number: CART-10419

PATIENT
  Age: 32 Year
  Sex: Male

DRUGS (1)
  1. CARTICEL [Suspect]
     Indication: ARTHROPATHY
     Dosage: 1 NA ONCE 1S
     Dates: start: 19951113, end: 19951113

REACTIONS (7)
  - ARTHROPATHY [None]
  - CHONDROMALACIA [None]
  - HYPERTROPHY [None]
  - JOINT ADHESION [None]
  - JOINT STIFFNESS [None]
  - NEUROMA [None]
  - THERAPY NON-RESPONDER [None]
